FAERS Safety Report 9220578 (Version 1)
Quarter: 2013Q2

REPORT INFORMATION
  Report Type: Spontaneous
  Country: US (occurrence: US)
  Receive Date: 20130409
  Receipt Date: 20130409
  Transmission Date: 20140414
  Serious: No
  Sender: FDA-Public Use
  Company Number: US-UPSHER-SMITH LABORATORIES, INC.-12000748

PATIENT
  Sex: Male

DRUGS (2)
  1. PREVALITE [Suspect]
     Indication: BLOOD CHOLESTEROL INCREASED
     Dosage: 4 G, TID
     Route: 048
     Dates: start: 20120117, end: 201205
  2. NOT REPORTED [Concomitant]

REACTIONS (1)
  - Muscle spasms [Unknown]
